FAERS Safety Report 7495581-8 (Version None)
Quarter: 2011Q2

REPORT INFORMATION
  Report Type: 
  Country: None (occurrence: None)
  Receive Date: 20110523
  Receipt Date: 20110511
  Transmission Date: 20111010
  Serious: Yes (Death, Life-Threatening, Hospitalization)
  Sender: FDA-Public Use
  Company Number: JP-JNJFOC-20110309959

PATIENT
  Sex: Male

DRUGS (9)
  1. TRAMADOL HCL [Suspect]
     Indication: PAIN
     Route: 048
     Dates: start: 20110224, end: 20110227
  2. VALTREX [Concomitant]
     Indication: HERPES ZOSTER
     Route: 065
     Dates: start: 20110202, end: 20110209
  3. ZANTAC [Concomitant]
     Dates: end: 20110314
  4. KOLANTYL(R) [Concomitant]
     Indication: EPIGASTRIC DISCOMFORT
     Route: 065
     Dates: start: 20110304
  5. ZOVIRAX [Concomitant]
     Indication: HERPES ZOSTER
     Route: 065
     Dates: start: 20110202, end: 20110209
  6. LORFENAMIN [Concomitant]
     Indication: PAIN
     Route: 065
     Dates: end: 20110314
  7. ZADITEN [Concomitant]
     Indication: GASTRITIS PROPHYLAXIS
     Dates: end: 20110314
  8. OMEPRAZOLE [Concomitant]
     Indication: EPIGASTRIC DISCOMFORT
     Route: 065
     Dates: start: 20110304
  9. GASMOTIN [Concomitant]
     Indication: EPIGASTRIC DISCOMFORT
     Route: 065
     Dates: start: 20110304

REACTIONS (8)
  - CONSTIPATION [None]
  - PRURITUS [None]
  - FAECES PALE [None]
  - EPIGASTRIC DISCOMFORT [None]
  - CHROMATURIA [None]
  - NAUSEA [None]
  - LIVER DISORDER [None]
  - DECREASED APPETITE [None]
